FAERS Safety Report 4365952-7 (Version None)
Quarter: 2004Q2

REPORT INFORMATION
  Report Type: 
  Country: None (occurrence: None)
  Receive Date: 20040526
  Receipt Date: 20040526
  Transmission Date: 20050107
  Serious: Yes (Other)
  Sender: FDA-Public Use
  Company Number: None

PATIENT
  Age: 72 Year
  Sex: Male
  Weight: 146.1 kg

DRUGS (22)
  1. GATIFLOXACIN [Suspect]
  2. PAROXETINE HCL [Concomitant]
  3. GLIPIZIDE [Concomitant]
  4. GEMFIBROZIL [Concomitant]
  5. GABAPENTIN [Concomitant]
  6. FUROSEMIDE [Concomitant]
  7. FOSINOPRIL SODIUM [Concomitant]
  8. ATORVASTATIN CALCIUM [Concomitant]
  9. ROSIGLITAZONE MALEATE [Concomitant]
  10. MULTI-VITAMIN [Concomitant]
  11. SUGARLESS(GUAIFENESIN/DM) [Concomitant]
  12. INSULIN 70/30 NPH/REG (HUMAN) [Concomitant]
  13. ALOH/MGOH/SIMTH XTRA STRENGTH [Concomitant]
  14. TUBERCULIN PPD [Concomitant]
  15. FACIAL CLEANSING BAR [Concomitant]
  16. BACITRACIN [Concomitant]
  17. ACETAMINOPHEN [Concomitant]
  18. CLINDAMYCIN HCL [Concomitant]
  19. ALBUTEROL SOLN (PREMIX) [Concomitant]
  20. OXYCODONE AND ACETAMINOPHEN [Concomitant]
  21. ASPIRIN [Concomitant]
  22. METFORMIN [Concomitant]

REACTIONS (1)
  - DELUSION [None]
